FAERS Safety Report 9859544 (Version 1)
Quarter: 2014Q1

REPORT INFORMATION
  Report Type: Spontaneous
  Country: US (occurrence: US)
  Receive Date: 20140131
  Receipt Date: 20140131
  Transmission Date: 20141002
  Serious: No
  Sender: FDA-Public Use
  Company Number: US-009507513-1401USA011539

PATIENT
  Age: 27 Year
  Sex: Female
  Weight: 65.31 kg

DRUGS (2)
  1. NEXPLANON [Suspect]
     Dosage: UNK
     Route: 059
     Dates: end: 20131218
  2. TEGRETOL [Concomitant]
     Dosage: 200 MG, BID

REACTIONS (2)
  - Unintended pregnancy [Unknown]
  - No adverse event [Unknown]
